FAERS Safety Report 5602181-0 (Version None)
Quarter: 2008Q1

REPORT INFORMATION
  Report Type: 
  Country: None (occurrence: None)
  Receive Date: 20080125
  Receipt Date: 20080115
  Transmission Date: 20080703
  Serious: Yes (Other)
  Sender: FDA-Public Use
  Company Number: US-ASTRAZENECA-2006UW08156

PATIENT
  Age: 49 Year
  Sex: Female
  Weight: 101.8 kg

DRUGS (11)
  1. SEROQUEL [Suspect]
     Indication: SCHIZOPHRENIA
     Route: 048
     Dates: start: 19980101
  2. SEROQUEL [Suspect]
     Indication: MENTAL DISORDER
     Route: 048
     Dates: start: 19980101
  3. SEROQUEL [Suspect]
     Route: 048
     Dates: start: 20020102, end: 20051207
  4. SEROQUEL [Suspect]
     Route: 048
     Dates: start: 20020102, end: 20051207
  5. ABILIFY [Concomitant]
  6. GEODON [Concomitant]
     Dates: start: 20070101
  7. HALDOL [Concomitant]
  8. ZYPREXA [Concomitant]
     Dates: start: 20000701, end: 20010301
  9. WELLBUTRIN XL [Concomitant]
     Dates: start: 20031208
  10. TEMAZEPAM [Concomitant]
     Dates: start: 20000711
  11. AMITRIPTYLINE HCL [Concomitant]
     Dates: start: 20000711

REACTIONS (9)
  - ALANINE AMINOTRANSFERASE INCREASED [None]
  - ASPARTATE AMINOTRANSFERASE INCREASED [None]
  - BLOOD ALKALINE PHOSPHATASE INCREASED [None]
  - BLOOD CHOLESTEROL INCREASED [None]
  - BLOOD LACTATE DEHYDROGENASE INCREASED [None]
  - BLOOD TRIGLYCERIDES INCREASED [None]
  - DIABETIC RETINOPATHY [None]
  - LIVER FUNCTION TEST ABNORMAL [None]
  - TYPE 2 DIABETES MELLITUS [None]
